FAERS Safety Report 6170399-7 (Version None)
Quarter: 2009Q2

REPORT INFORMATION
  Report Type: 
  Country: None (occurrence: None)
  Receive Date: 20090427
  Receipt Date: 20090427
  Transmission Date: 20091009
  Serious: Yes (Hospitalization)
  Sender: FDA-Public Use
  Company Number: None

PATIENT
  Age: 40 Year
  Sex: Female
  Weight: 51.3 kg

DRUGS (5)
  1. VANCOMYCIN HCL [Suspect]
     Indication: CELLULITIS
     Dosage: 1G IV Q24
     Route: 042
     Dates: start: 20081126, end: 20081129
  2. MONTELUKAST [Concomitant]
  3. SPIRONOLACTONE [Concomitant]
  4. ALBUTEROL [Concomitant]
  5. SALMETEROL/ FLUTICASONE [Concomitant]

REACTIONS (4)
  - CELLULITIS [None]
  - EYE DISORDER [None]
  - HAEMATOMA [None]
  - PARAESTHESIA [None]
